FAERS Safety Report 9401408 (Version 1)
Quarter: 2013Q3

REPORT INFORMATION
  Report Type: Spontaneous
  Country: CN (occurrence: CN)
  Receive Date: 20130715
  Receipt Date: 20130715
  Transmission Date: 20140515
  Serious: Yes (Hospitalization)
  Sender: FDA-Public Use
  Company Number: CN-BAXTER-2013BAX026371

PATIENT
  Age: 16 Year
  Sex: Male
  Weight: 60 kg

DRUGS (2)
  1. 0.9% SODIUM CHLORIDE INJECTION [Suspect]
     Indication: BRONCHOPNEUMONIA
     Route: 041
     Dates: start: 20120319
  2. CEFTRIAXONE SODIUM [Suspect]
     Indication: BRONCHOPNEUMONIA
     Route: 041
     Dates: start: 20120319, end: 20120319

REACTIONS (7)
  - Choking [Recovering/Resolving]
  - Dyspnoea [Recovering/Resolving]
  - Rash maculo-papular [Recovering/Resolving]
  - Wheezing [Recovering/Resolving]
  - Dyspnoea [Recovering/Resolving]
  - Apparent death [Recovering/Resolving]
  - Rash erythematous [Recovering/Resolving]
